FAERS Safety Report 14428652 (Version 2)
Quarter: 2018Q2

REPORT INFORMATION
  Report Type: Spontaneous
  Country: US (occurrence: US)
  Receive Date: 20180123
  Receipt Date: 20180406
  Transmission Date: 20180711
  Serious: Yes (Hospitalization)
  Sender: FDA-Public Use
  Company Number: US-ACTELION-A-US2018-166100

PATIENT
  Age: 47 Year
  Sex: Female

DRUGS (2)
  1. OPSUMIT [Suspect]
     Active Substance: MACITENTAN
     Indication: PULMONARY ARTERIAL HYPERTENSION
     Dosage: 10 MG, QD
     Route: 048
     Dates: start: 20150130
  2. PREDNISONE. [Concomitant]
     Active Substance: PREDNISONE

REACTIONS (7)
  - Interstitial lung disease [Unknown]
  - Urinary tract infection [Unknown]
  - Respiratory tract congestion [Unknown]
  - Fall [Unknown]
  - Cough [Unknown]
  - Dyspnoea [Unknown]
  - Bronchitis [Unknown]

NARRATIVE: CASE EVENT DATE: 20171218
